FAERS Safety Report 4513146-4 (Version None)
Quarter: 2004Q4

REPORT INFORMATION
  Report Type: 
  Country: None (occurrence: None)
  Receive Date: 20041124
  Receipt Date: 20041112
  Transmission Date: 20050328
  Serious: Yes (Hospitalization)
  Sender: FDA-Public Use
  Company Number: HQWYE469915NOV04

PATIENT
  Sex: Male

DRUGS (2)
  1. EFFEXOR XR [Suspect]
     Indication: DEPRESSION
     Dosage: APPROXIMATELY THIRTY EFFEXOR XR 150 MG CAPSULES (OVERDOSE AMOUNT), ORAL
     Route: 048
     Dates: start: 20041112, end: 20041112
  2. KLONOPIN [Suspect]
     Dosage: NINETY KLONOPIN 0.5 MG TABLETS (OVERDOSE AMOUNT), ORAL
     Route: 048
     Dates: start: 20041112, end: 20041112

REACTIONS (5)
  - COMA [None]
  - DRUG INEFFECTIVE [None]
  - INTENTIONAL OVERDOSE [None]
  - SOCIAL AVOIDANT BEHAVIOUR [None]
  - SUICIDE ATTEMPT [None]
